FAERS Safety Report 23627800 (Version 2)
Quarter: 2024Q1

REPORT INFORMATION
  Report Type: Spontaneous
  Country: US (occurrence: US)
  Receive Date: 20240313
  Receipt Date: 20240325
  Transmission Date: 20240410
  Serious: Yes (Hospitalization)
  Sender: FDA-Public Use
  Company Number: US-MYLANLABS-2024M1022726

PATIENT
  Sex: Female
  Weight: 127 kg

DRUGS (2)
  1. WIXELA INHUB [Suspect]
     Active Substance: FLUTICASONE PROPIONATE\SALMETEROL XINAFOATE
     Indication: Asthma
     Dosage: UNK, BID (ONE PUFF TWICE A DAY)
     Route: 055
  2. WIXELA INHUB [Suspect]
     Active Substance: FLUTICASONE PROPIONATE\SALMETEROL XINAFOATE
     Dosage: UNK
     Route: 055

REACTIONS (7)
  - Scratch [Unknown]
  - Skin lesion [Unknown]
  - Hypoaesthesia oral [Unknown]
  - Lip pruritus [Unknown]
  - Facial pain [Unknown]
  - Rhinalgia [Unknown]
  - Nasal ulcer [Unknown]
